FAERS Safety Report 9250831 (Version 1)
Quarter: 2013Q1

REPORT INFORMATION
  Report Type: Spontaneous
  Country: US (occurrence: None)
  Receive Date: 20130305
  Receipt Date: 20130305
  Transmission Date: 20140127
  Serious: Yes (Hospitalization)
  Sender: FDA-Public Use
  Company Number: 163-21880-12040275

PATIENT
  Age: 66 Year
  Sex: Female
  Weight: 129.73 kg

DRUGS (10)
  1. REVLIMID [Suspect]
     Indication: PLASMA CELL MYELOMA
     Dosage: 10 MG, DAILY X 21 DAYS/ 7
     Route: 048
     Dates: start: 20110930
  2. POTASSIUM [Concomitant]
  3. FUROSEMIDE [Concomitant]
  4. RANITIDINE [Concomitant]
  5. RANITIDINE [Concomitant]
  6. GEMFIBROZIL [Concomitant]
  7. VENLAFAXINE [Concomitant]
  8. VERAPAMIL [Concomitant]
  9. COUMADIN (WARFARIN SODIUM) [Concomitant]
  10. GERD MEDICATION (DRUGS FOR FUNCTIONAL GASTROINTEST. DISORDERS) [Concomitant]

REACTIONS (2)
  - Thrombosis [None]
  - Insomnia [None]
